FAERS Safety Report 26203960 (Version 1)
Quarter: 2025Q4

REPORT INFORMATION
  Report Type: Report from Study
  Country: IN (occurrence: IN)
  Receive Date: 20251226
  Receipt Date: 20251226
  Transmission Date: 20260117
  Serious: Yes (Other)
  Sender: DAIICHI
  Company Number: IN-AstraZeneca-CH-01015010A

PATIENT
  Sex: Female
  Weight: 44 kg

DRUGS (1)
  1. ENHERTU [Suspect]
     Active Substance: FAM-TRASTUZUMAB DERUXTECAN-NXKI
     Indication: Targeted cancer therapy
     Dosage: 100 MG, ONCE EVERY 3 WK
     Route: 042
     Dates: start: 20251111

REACTIONS (3)
  - Pulmonary oedema [Unknown]
  - Peripheral swelling [Unknown]
  - Hypophagia [Unknown]
